FAERS Safety Report 17530285 (Version 1)
Quarter: 2020Q1

REPORT INFORMATION
  Report Type: Report from Study
  Country: IR (occurrence: IR)
  Receive Date: 20200311
  Receipt Date: 20200311
  Transmission Date: 20200409
  Serious: Yes (Hospitalization)
  Sender: FDA-Public Use
  Company Number: IR-NOVOPROD-716542

PATIENT
  Age: 336 Month
  Sex: Female
  Weight: 76 kg

DRUGS (2)
  1. SAXENDA [Suspect]
     Active Substance: LIRAGLUTIDE
     Dosage: 1.20 MG, QD
     Route: 058
  2. SAXENDA [Suspect]
     Active Substance: LIRAGLUTIDE
     Indication: OBESITY
     Dosage: UNK
     Route: 058

REACTIONS (5)
  - Diarrhoea [Unknown]
  - Vomiting [Unknown]
  - Cold sweat [Unknown]
  - Nausea [Unknown]
  - Hypotension [Unknown]
